FAERS Safety Report 8204150-3 (Version None)
Quarter: 2012Q1

REPORT INFORMATION
  Report Type: 
  Country: None (occurrence: None)
  Receive Date: 20120309
  Receipt Date: 20120229
  Transmission Date: 20120608
  Serious: Yes (Other)
  Sender: FDA-Public Use
  Company Number: 2010MA004927

PATIENT
  Sex: Male
  Weight: 95.2554 kg

DRUGS (25)
  1. COGENTIN [Concomitant]
  2. FLEXERIL [Concomitant]
  3. MEDROL [Concomitant]
  4. METOCLOPRAMIDE HYDROCHLORIDE [Suspect]
     Indication: GASTROOESOPHAGEAL REFLUX DISEASE
     Dosage: 5 MG; TID; PO
     Route: 048
     Dates: start: 20070608, end: 20080901
  5. METOCLOPRAMIDE HYDROCHLORIDE [Suspect]
     Indication: NAUSEA
     Dosage: 5 MG; TID; PO
     Route: 048
     Dates: start: 20070608, end: 20080901
  6. CLINDAMYCIN [Concomitant]
  7. NORCO [Concomitant]
  8. PROPROXYPHENE/APAP [Concomitant]
  9. QUETIAPINE [Concomitant]
  10. CODEINE SULFATE [Concomitant]
  11. TRAMADOL HCL [Concomitant]
  12. ACETAMINOPHEN [Concomitant]
  13. CHANTIX [Concomitant]
  14. THIAMINE HCL [Concomitant]
  15. ATIVAN [Concomitant]
  16. KLONOPIN [Concomitant]
  17. OMEPRAZOLE [Concomitant]
  18. XANAX [Concomitant]
  19. LISINOPRIL [Concomitant]
  20. PROMETHAZINE [Concomitant]
  21. SOMA [Concomitant]
  22. BACLOFEN [Concomitant]
  23. FOLIC ACID [Concomitant]
  24. NORVASC [Concomitant]
  25. ROBAXIN [Concomitant]

REACTIONS (30)
  - BALANCE DISORDER [None]
  - CHOREA [None]
  - HYPERTENSION [None]
  - DYSKINESIA [None]
  - ALCOHOL WITHDRAWAL SYNDROME [None]
  - MUSCULOSKELETAL PAIN [None]
  - TREMOR [None]
  - DYSTONIA [None]
  - ROTATOR CUFF SYNDROME [None]
  - TARDIVE DYSKINESIA [None]
  - EMOTIONAL DISORDER [None]
  - COUGH [None]
  - BIPOLAR DISORDER [None]
  - SLEEP DISORDER [None]
  - TREATMENT NONCOMPLIANCE [None]
  - EXTRAPYRAMIDAL DISORDER [None]
  - MYOCLONUS [None]
  - GAIT DISTURBANCE [None]
  - CEREBELLAR SYNDROME [None]
  - PHARYNGEAL OEDEMA [None]
  - INTERVERTEBRAL DISC DEGENERATION [None]
  - SPEECH DISORDER [None]
  - MUSCLE SPASMS [None]
  - ECONOMIC PROBLEM [None]
  - GASTROOESOPHAGEAL REFLUX DISEASE [None]
  - SUBSTANCE ABUSE [None]
  - BACK PAIN [None]
  - ACTIVITIES OF DAILY LIVING IMPAIRED [None]
  - AGITATION [None]
  - FALL [None]
